FAERS Safety Report 15449452 (Version 2)
Quarter: 2019Q1

REPORT INFORMATION
  Report Type: Report from Study
  Country: None (occurrence: TR)
  Receive Date: 20181001
  Receipt Date: 20190102
  Transmission Date: 20190417
  Serious: Yes (Hospitalization)
  Sender: FDA-Public Use
  Company Number: TR-ABBVIE-18S-161-2455117-00

PATIENT
  Sex: Male
  Weight: 60 kg

DRUGS (7)
  1. DICLOFLAM [Concomitant]
     Indication: PAIN IN EXTREMITY
     Dosage: AS NEEDED
     Route: 048
  2. DUODOPA [Suspect]
     Active Substance: CARBIDOPA\LEVODOPA
     Dosage: MD: 8.00 ML CD: 3.50 ML ED: 1.50 ML
     Route: 050
     Dates: start: 2018, end: 20180816
  3. CANDIMAX [Concomitant]
     Indication: ANTIFUNGAL TREATMENT
     Route: 048
  4. DUODOPA [Suspect]
     Active Substance: CARBIDOPA\LEVODOPA
     Indication: PARKINSON^S DISEASE
     Dosage: MD: 8.0 ML CD: 3.5 ML ED: 1.5 ML
     Route: 050
     Dates: start: 20180607, end: 2018
  5. DUODOPA [Suspect]
     Active Substance: CARBIDOPA\LEVODOPA
     Dosage: MD: 8.00 ML CD: 3.60 ML ED: 1.50 ML
     Route: 050
     Dates: start: 20180816
  6. STALEVO [Concomitant]
     Active Substance: CARBIDOPA\ENTACAPONE\LEVODOPA
     Indication: PARKINSON^S DISEASE
     Route: 048
     Dates: start: 20180611
  7. PK MERZ [Concomitant]
     Active Substance: AMANTADINE SULFATE
     Indication: PARKINSON^S DISEASE
     Route: 048
     Dates: start: 20180607

REACTIONS (1)
  - Urinary tract infection [Recovering/Resolving]

NARRATIVE: CASE EVENT DATE: 2018
